FAERS Safety Report 23822444 (Version 1)
Quarter: 2024Q2

REPORT INFORMATION
  Report Type: Spontaneous
  Country: US (occurrence: None)
  Receive Date: 20240504
  Receipt Date: 20240504
  Transmission Date: 20240716
  Serious: Yes (Hospitalization)
  Sender: FDA-Public Use
  Company Number: None

PATIENT
  Age: 63 Year
  Sex: Male
  Weight: 69 kg

DRUGS (1)
  1. SEMAGLUTIDE [Suspect]
     Active Substance: SEMAGLUTIDE
     Dosage: 1 MG QWEEK SQ
     Route: 058
     Dates: start: 20240205, end: 20240422

REACTIONS (3)
  - Diabetic ketoacidosis [None]
  - Acute kidney injury [None]
  - Hyperphosphataemia [None]

NARRATIVE: CASE EVENT DATE: 20240428
